FAERS Safety Report 5842993-1 (Version None)
Quarter: 2008Q3

REPORT INFORMATION
  Report Type: 
  Country: None (occurrence: None)
  Receive Date: 20080813
  Receipt Date: 20080730
  Transmission Date: 20090109
  Serious: Yes (Hospitalization)
  Sender: FDA-Public Use
  Company Number: GB-ELI_LILLY_AND_COMPANY-GB200808000136

PATIENT
  Sex: Male

DRUGS (2)
  1. GEMZAR [Suspect]
     Indication: BILE DUCT CANCER
     Dosage: UNK, UNKNOWN
     Route: 065
  2. ANTIBIOTICS [Concomitant]
     Indication: INFECTION
     Dosage: UNK, UNKNOWN
     Route: 065

REACTIONS (2)
  - ENCEPHALITIS [None]
  - LOSS OF CONSCIOUSNESS [None]
